FAERS Safety Report 6266593-7 (Version None)
Quarter: 2009Q3

REPORT INFORMATION
  Report Type: 
  Country: None (occurrence: None)
  Receive Date: 20090709
  Receipt Date: 20090701
  Transmission Date: 20100115
  Serious: Yes (Death, Life-Threatening, Hospitalization)
  Sender: FDA-Public Use
  Company Number: 231979K09USA

PATIENT
  Age: 54 Year
  Sex: Male

DRUGS (1)
  1. REBIF [Suspect]
     Indication: MULTIPLE SCLEROSIS
     Dates: start: 20060607, end: 20080315

REACTIONS (4)
  - DYSPNOEA [None]
  - INFECTION [None]
  - PROCEDURAL COMPLICATION [None]
  - TRACHEAL HAEMORRHAGE [None]
